FAERS Safety Report 10530863 (Version 2)
Quarter: 2015Q1

REPORT INFORMATION
  Report Type: Spontaneous
  Country: GB (occurrence: GB)
  Receive Date: 20141021
  Receipt Date: 20150205
  Transmission Date: 20150720
  Serious: Yes (Hospitalization, Other)
  Sender: FDA-Public Use
  Company Number: GB-GLAXOSMITHKLINE-GB2014003152

PATIENT

DRUGS (1)
  1. LAMOTRIGINE. [Suspect]
     Active Substance: LAMOTRIGINE
     Indication: EPILEPSY
     Dosage: ALTERNATE DAYS FOR TWO WEEKS (ONCE 2 DAY)
     Dates: start: 20131120, end: 20131207

REACTIONS (3)
  - Rash [Recovered/Resolved]
  - Neutropenic sepsis [Recovered/Resolved]
  - Mouth ulceration [Recovered/Resolved]
